FAERS Safety Report 9395092 (Version 1)
Quarter: 2013Q3

REPORT INFORMATION
  Report Type: Spontaneous
  Country: US (occurrence: US)
  Receive Date: 20130711
  Receipt Date: 20130711
  Transmission Date: 20140515
  Serious: Yes (Hospitalization)
  Sender: FDA-Public Use
  Company Number: US-BAYER-2013-084294

PATIENT
  Age: 47 Year
  Sex: Female

DRUGS (6)
  1. YASMIN [Suspect]
  2. IBUPROFEN [Concomitant]
  3. OMEPRAZOLE [Concomitant]
  4. FISH OIL [Concomitant]
  5. FERREX [Concomitant]
  6. MULTIVITAMIN [Concomitant]

REACTIONS (1)
  - Deep vein thrombosis [None]
